FAERS Safety Report 20503897 (Version 1)
Quarter: 2022Q1

REPORT INFORMATION
  Report Type: Spontaneous
  Country: US (occurrence: None)
  Receive Date: 20220221
  Receipt Date: 20220221
  Transmission Date: 20220423
  Serious: Yes (Disabling)
  Sender: FDA-Public Use
  Company Number: None

PATIENT
  Age: 42 Year
  Sex: Male
  Weight: 102.97 kg

DRUGS (1)
  1. DEXMETHYLPHENIDATE HYDROCHLORIDE [Suspect]
     Active Substance: DEXMETHYLPHENIDATE HYDROCHLORIDE
     Indication: Attention deficit hyperactivity disorder
     Dosage: FREQUENCY : DAILY;?
     Route: 048

REACTIONS (3)
  - Tinnitus [None]
  - Vertigo [None]
  - Deafness [None]

NARRATIVE: CASE EVENT DATE: 20220120
